FAERS Safety Report 9385046 (Version 1)
Quarter: 2013Q3

REPORT INFORMATION
  Report Type: Spontaneous
  Country: US (occurrence: US)
  Receive Date: 20130705
  Receipt Date: 20130705
  Transmission Date: 20140515
  Serious: No
  Sender: FDA-Public Use
  Company Number: US-GLAXOSMITHKLINE-A1026439A

PATIENT
  Age: 40 Year
  Sex: Female

DRUGS (1)
  1. BENLYSTA [Suspect]
     Indication: SYSTEMIC LUPUS ERYTHEMATOSUS
     Dosage: 120NG CYCLIC
     Route: 042
     Dates: start: 20130508

REACTIONS (4)
  - Headache [Unknown]
  - Nausea [Unknown]
  - Middle ear effusion [Unknown]
  - Pyrexia [Unknown]
